FAERS Safety Report 8791537 (Version 1)
Quarter: 2012Q4

REPORT INFORMATION
  Report Type: Spontaneous
  Country: DE (occurrence: None)
  Receive Date: 20120913
  Receipt Date: 20120913
  Transmission Date: 20130627
  Serious: Yes (Congenital Anomaly, Other)
  Sender: FDA-Public Use
  Company Number: DSM-2012-00953

PATIENT
  Sex: Female

DRUGS (1)
  1. OLMETEC [Suspect]
     Indication: DRUG USE FOR UNKNOWN INDICATION
     Dosage: (5 mg, 1 in 1 D)
     Route: 048

REACTIONS (3)
  - Pregnancy [None]
  - Abortion spontaneous [None]
  - Exposure during pregnancy [None]
